FAERS Safety Report 6493287-5 (Version None)
Quarter: 2009Q4

REPORT INFORMATION
  Report Type: 
  Country: None (occurrence: None)
  Receive Date: 20091214
  Receipt Date: 20091204
  Transmission Date: 20100525
  Serious: Yes (Other)
  Sender: FDA-Public Use
  Company Number: US-GENENTECH-290762

PATIENT
  Age: 87 Year
  Sex: Female

DRUGS (3)
  1. LUCENTIS [Suspect]
     Indication: RETINAL HAEMORRHAGE
     Dosage: 0.5 MG, UNK
     Route: 031
  2. LATANOPROST [Concomitant]
     Indication: GLAUCOMA
     Dosage: UNK
  3. WARFARIN SODIUM [Concomitant]
     Indication: CAROTID ARTERY STENOSIS

REACTIONS (6)
  - EYE PAIN [None]
  - INTRAOCULAR PRESSURE INCREASED [None]
  - LACRIMATION INCREASED [None]
  - RETINAL HAEMORRHAGE [None]
  - VISUAL ACUITY REDUCED [None]
  - VITREOUS HAEMORRHAGE [None]
